FAERS Safety Report 14674934 (Version 1)
Quarter: 2018Q1

REPORT INFORMATION
  Report Type: Spontaneous
  Country: CH (occurrence: CH)
  Receive Date: 20180323
  Receipt Date: 20180323
  Transmission Date: 20180509
  Serious: Yes (Death)
  Sender: FDA-Public Use
  Company Number: CH-BAYER-2018-049036

PATIENT
  Age: 67 Year
  Sex: Female

DRUGS (16)
  1. MODOPAR [Concomitant]
     Active Substance: BENSERAZIDE HYDROCHLORIDE\LEVODOPA
     Dosage: 62.5 MG, TID
     Route: 048
  2. ESOMEPRAZOLE [Concomitant]
     Active Substance: ESOMEPRAZOLE
     Dosage: 20 MG, QD
     Route: 048
  3. TAMBOCOR [Interacting]
     Active Substance: FLECAINIDE ACETATE
     Dosage: 100 MG, QD
     Route: 048
     Dates: start: 201606
  4. SIFROL [Concomitant]
     Active Substance: PRAMIPEXOLE
     Dosage: 1.5 MG, QD
     Route: 048
  5. TOREM [Concomitant]
     Active Substance: TORSEMIDE
     Dosage: 5 MG, QD
     Route: 048
  6. ONGLYZA [Concomitant]
     Active Substance: SAXAGLIPTIN HYDROCHLORIDE
     Dosage: 2.5 MG, UNK
     Route: 048
  7. TORA-DOL [Concomitant]
     Active Substance: KETOROLAC TROMETHAMINE
     Dates: start: 20161123, end: 20161127
  8. CLONAZEPAM. [Concomitant]
     Active Substance: CLONAZEPAM
  9. CIPROXIN 500 MG [Suspect]
     Active Substance: CIPROFLOXACIN
     Dosage: 500 MG, BID
     Route: 048
     Dates: start: 20161123, end: 20161201
  10. PRAMIPEXOLE DIHYDROCHLORIDE. [Concomitant]
     Active Substance: PRAMIPEXOLE DIHYDROCHLORIDE
     Dosage: 0.75 MG, QD
     Route: 048
  11. FLUCTINE [Interacting]
     Active Substance: FLUOXETINE HYDROCHLORIDE
     Indication: DEPRESSION
     Dosage: 20 MG, QD
     Route: 048
     Dates: start: 20151009
  12. PERINDOPRIL [Concomitant]
     Active Substance: PERINDOPRIL
     Dosage: 5 MG, QD
     Route: 048
  13. DAFALGAN [Concomitant]
     Active Substance: ACETAMINOPHEN
     Dates: start: 20161123, end: 20161127
  14. ROCEPHIN [Concomitant]
     Active Substance: CEFTRIAXONE SODIUM
     Dates: start: 20161123, end: 20161127
  15. DILATREND [Concomitant]
     Active Substance: CARVEDILOL
     Dosage: 12.5 MG, QD
     Route: 048
  16. KOMBIGLYZE XR [Concomitant]
     Active Substance: METFORMIN HYDROCHLORIDE\SAXAGLIPTIN HYDROCHLORIDE
     Dosage: 1 DF, QD
     Route: 048

REACTIONS (2)
  - Sudden death [Fatal]
  - Drug level above therapeutic [Fatal]

NARRATIVE: CASE EVENT DATE: 20161205
